FAERS Safety Report 8867860 (Version 1)
Quarter: 2012Q4

REPORT INFORMATION
  Report Type: 
  Country: US (occurrence: US)
  Receive Date: 20121026
  Receipt Date: 20121026
  Transmission Date: 20130627
  Serious: No
  Sender: FDA-Public Use
  Company Number: US-AMGEN-USASP2012040781

PATIENT
  Age: 62 Year

DRUGS (7)
  1. ENBREL [Suspect]
     Indication: PRODUCT USED FOR UNKNOWN INDICATION
     Dosage: 50 mg, 2 times/wk
     Route: 058
  2. CENTRUM                            /01536001/ [Concomitant]
     Dosage: UNK
  3. AVAPRO [Concomitant]
     Dosage: 150 mg, UNK
  4. METFORMIN [Concomitant]
     Dosage: 500 mg, UNK
  5. SIMVASTATIN [Concomitant]
     Dosage: 10 mg, UNK
  6. BABY ASPIRIN [Concomitant]
     Dosage: 81 mg, UNK
  7. TYLENOL /00020001/ [Concomitant]
     Dosage: 8 HR TAB 650MG

REACTIONS (3)
  - Nausea [Recovered/Resolved]
  - Diarrhoea [Recovered/Resolved]
  - Pruritus [Unknown]
